FAERS Safety Report 5868193-7 (Version None)
Quarter: 2008Q3

REPORT INFORMATION
  Report Type: 
  Country: None (occurrence: None)
  Receive Date: 20080902
  Receipt Date: 20080825
  Transmission Date: 20090109
  Serious: Yes (Hospitalization, Other)
  Sender: FDA-Public Use
  Company Number: US-AMGEN-QUU303890

PATIENT
  Sex: Female

DRUGS (1)
  1. ENBREL [Suspect]
     Indication: RHEUMATOID ARTHRITIS
     Route: 058
     Dates: start: 20060101

REACTIONS (9)
  - ARTHRALGIA [None]
  - BACK PAIN [None]
  - BURSAL OPERATION [None]
  - FALL [None]
  - JOINT SWELLING [None]
  - LABORATORY TEST ABNORMAL [None]
  - PAIN [None]
  - POSTOPERATIVE WOUND INFECTION [None]
  - TACHYCARDIA [None]
